FAERS Safety Report 4645122-5 (Version None)
Quarter: 2005Q2

REPORT INFORMATION
  Report Type: 
  Country: None (occurrence: None)
  Receive Date: 20050422
  Receipt Date: 20050418
  Transmission Date: 20051028
  Serious: Yes (Hospitalization)
  Sender: FDA-Public Use
  Company Number: GBWYE594318APR05

PATIENT
  Age: 58 Year
  Sex: Male

DRUGS (12)
  1. RAPAMUNE [Suspect]
     Indication: IMMUNOSUPPRESSANT DRUG THERAPY
     Dosage: ORAL
     Route: 048
     Dates: start: 20041113
  2. TACROLIMUS (TACROLIMUS) [Concomitant]
  3. AZATHIOPRINE [Concomitant]
  4. LANSOPRAZOLE [Concomitant]
  5. THIAMINE (THIAMINE) [Concomitant]
  6. VITAMIN B-COMPLEX (VITAMIN B-COMPLEX) [Concomitant]
  7. MORPHINE SULFATE [Concomitant]
  8. ORAMORPH SR [Concomitant]
  9. ALENDRONIC ACID (ALENDRONIC ACID) [Concomitant]
  10. ADCAL D3 (CALCIUM CARBONATE/COLECALCIFEROL) [Concomitant]
  11. ACETAMINOPHEN [Concomitant]
  12. DIAZEPAM [Concomitant]

REACTIONS (5)
  - ARTHRALGIA [None]
  - DYSPNOEA [None]
  - MOBILITY DECREASED [None]
  - OEDEMA PERIPHERAL [None]
  - PARAESTHESIA [None]
